FAERS Safety Report 12974203 (Version 29)
Quarter: 2022Q4

REPORT INFORMATION
  Report Type: Other
  Country: CA (occurrence: CA)
  Receive Date: 20161125
  Receipt Date: 20221227
  Transmission Date: 20230112
  Serious: Yes (Hospitalization, Other)
  Sender: FDA-Public Use
  Company Number: CA-002147023-PHHY2014CA156324

PATIENT
  Age: 42 Year
  Sex: Female

DRUGS (28)
  1. XOLAIR [Suspect]
     Active Substance: OMALIZUMAB
     Indication: Chronic spontaneous urticaria
     Route: 058
     Dates: start: 20141127
  2. XOLAIR [Suspect]
     Active Substance: OMALIZUMAB
     Route: 058
     Dates: start: 20150130
  3. XOLAIR [Suspect]
     Active Substance: OMALIZUMAB
     Route: 058
  4. XOLAIR [Suspect]
     Active Substance: OMALIZUMAB
     Route: 058
  5. XOLAIR [Suspect]
     Active Substance: OMALIZUMAB
     Route: 058
     Dates: start: 201512
  6. XOLAIR [Suspect]
     Active Substance: OMALIZUMAB
     Route: 058
     Dates: start: 20170119
  7. XOLAIR [Suspect]
     Active Substance: OMALIZUMAB
     Route: 058
     Dates: start: 20170208
  8. XOLAIR [Suspect]
     Active Substance: OMALIZUMAB
     Route: 058
     Dates: start: 20170119
  9. XOLAIR [Suspect]
     Active Substance: OMALIZUMAB
     Route: 058
     Dates: start: 20170208
  10. XOLAIR [Suspect]
     Active Substance: OMALIZUMAB
     Route: 058
     Dates: start: 20170505
  11. XOLAIR [Suspect]
     Active Substance: OMALIZUMAB
     Route: 058
     Dates: start: 20170606
  12. XOLAIR [Suspect]
     Active Substance: OMALIZUMAB
     Route: 058
     Dates: start: 20170731
  13. XOLAIR [Suspect]
     Active Substance: OMALIZUMAB
     Route: 058
     Dates: start: 20190319
  14. XOLAIR [Suspect]
     Active Substance: OMALIZUMAB
     Route: 058
  15. XOLAIR [Suspect]
     Active Substance: OMALIZUMAB
     Route: 058
  16. XOLAIR [Suspect]
     Active Substance: OMALIZUMAB
     Route: 058
  17. XOLAIR [Suspect]
     Active Substance: OMALIZUMAB
     Route: 058
     Dates: start: 201711
  18. XOLAIR [Suspect]
     Active Substance: OMALIZUMAB
     Route: 058
  19. XOLAIR [Suspect]
     Active Substance: OMALIZUMAB
     Route: 058
  20. XOLAIR [Suspect]
     Active Substance: OMALIZUMAB
     Route: 058
  21. XOLAIR [Suspect]
     Active Substance: OMALIZUMAB
     Route: 058
     Dates: start: 20210928
  22. BENADRYL [Suspect]
     Active Substance: DIPHENHYDRAMINE HYDROCHLORIDE
     Indication: Swelling face
     Route: 065
  23. BENADRYL [Suspect]
     Active Substance: DIPHENHYDRAMINE HYDROCHLORIDE
     Indication: Lip swelling
     Dosage: 2 DOSAGE FORM
     Route: 065
     Dates: start: 20190326
  24. BENADRYL [Suspect]
     Active Substance: DIPHENHYDRAMINE HYDROCHLORIDE
     Indication: Eye swelling
     Dosage: UNK
     Route: 065
  25. BENADRYL [Suspect]
     Active Substance: DIPHENHYDRAMINE HYDROCHLORIDE
     Indication: Throat tightness
     Dosage: 125 MG SOME IN THE MORNING, SOME AROUND 6:20PM IN THE EVENING) AND ANOTHER 25MG WHILE SHE WAS WAITIN
     Route: 065
  26. BENADRYL [Suspect]
     Active Substance: DIPHENHYDRAMINE HYDROCHLORIDE
     Indication: Paraesthesia oral
     Dosage: 50 MG (GIVEN TO LEFT DELTOID)
     Route: 065
     Dates: start: 20220706
  27. BENADRYL [Suspect]
     Active Substance: DIPHENHYDRAMINE HYDROCHLORIDE
     Indication: Food allergy
  28. BENADRYL [Suspect]
     Active Substance: DIPHENHYDRAMINE HYDROCHLORIDE
     Indication: Throat irritation

REACTIONS (34)
  - Anaphylactic reaction [Unknown]
  - Hypersensitivity [Unknown]
  - Unresponsive to stimuli [Unknown]
  - Throat irritation [Recovered/Resolved]
  - Nausea [Unknown]
  - Malaise [Unknown]
  - Confusional state [Unknown]
  - Accident at work [Unknown]
  - Suspected COVID-19 [Unknown]
  - Pyrexia [Unknown]
  - Headache [Unknown]
  - Diarrhoea [Unknown]
  - Swelling [Not Recovered/Not Resolved]
  - Ear pain [Unknown]
  - Chest discomfort [Unknown]
  - Pain in jaw [Unknown]
  - Asthenia [Unknown]
  - Somnolence [Unknown]
  - Food allergy [Unknown]
  - Throat tightness [Unknown]
  - Paraesthesia oral [Unknown]
  - Feeling jittery [Unknown]
  - Oropharyngeal pain [Unknown]
  - Pain in extremity [Unknown]
  - Heat stroke [Unknown]
  - Skin discolouration [Unknown]
  - Symptom recurrence [Unknown]
  - Weight increased [Unknown]
  - Pruritus [Unknown]
  - Fatigue [Unknown]
  - Arthralgia [Unknown]
  - Urticaria [Unknown]
  - Inappropriate schedule of product administration [Unknown]
  - Therapeutic response shortened [Unknown]

NARRATIVE: CASE EVENT DATE: 20141127
